FAERS Safety Report 4356303-2 (Version None)
Quarter: 2004Q2

REPORT INFORMATION
  Report Type: 
  Country: None (occurrence: None)
  Receive Date: 20040510
  Receipt Date: 20040510
  Transmission Date: 20050107
  Serious: Yes (Hospitalization)
  Sender: FDA-Public Use
  Company Number: None

PATIENT
  Age: 69 Year
  Sex: Female
  Weight: 61.3 kg

DRUGS (10)
  1. INTEGRILIN [Suspect]
     Indication: ANTIPLATELET THERAPY
     Dosage: 2 (5-6 ML BOLUSES) 5ML/HR IV
     Route: 042
     Dates: start: 20040427, end: 20040428
  2. HEPARIN [Suspect]
     Indication: THROMBOSIS PROPHYLAXIS
     Dosage: 3070 UNITS IV
     Route: 042
     Dates: start: 20040428
  3. MIDAZOLAM HCL [Concomitant]
  4. FENTANYL [Concomitant]
  5. MORPHINE [Concomitant]
  6. DROPERIDOL [Concomitant]
  7. CEFAZOLIN [Concomitant]
  8. ASPIRIN [Concomitant]
  9. PEPCID [Concomitant]
  10. CLOPIDOGREL BISULFATE [Concomitant]

REACTIONS (3)
  - BLOOD CREATINE PHOSPHOKINASE MB INCREASED [None]
  - DRUG INEFFECTIVE [None]
  - POST PROCEDURAL HAEMORRHAGE [None]
